FAERS Safety Report 17209997 (Version 3)
Quarter: 2021Q1

REPORT INFORMATION
  Report Type: Spontaneous
  Country: CH (occurrence: CH)
  Receive Date: 20191227
  Receipt Date: 20210126
  Transmission Date: 20210419
  Serious: Yes (Hospitalization, Other)
  Sender: FDA-Public Use
  Company Number: CH-MYLANLABS-2019M1128500

PATIENT
  Age: 78 Year
  Sex: Female

DRUGS (7)
  1. ASPIRIN CARDIO [Concomitant]
     Active Substance: ASPIRIN
     Dosage: UNK
  2. CARBOPLATIN. [Suspect]
     Active Substance: CARBOPLATIN
     Indication: SQUAMOUS CELL CARCINOMA OF LUNG
     Dosage: UNK
     Dates: end: 201909
  3. PACLITAXEL. [Suspect]
     Active Substance: PACLITAXEL
     Indication: SQUAMOUS CELL CARCINOMA OF LUNG
     Dosage: UNK
     Dates: end: 201909
  4. IMFINZI [Suspect]
     Active Substance: DURVALUMAB
     Indication: SQUAMOUS CELL CARCINOMA OF LUNG
     Dosage: UNK
     Dates: start: 20191119, end: 20191119
  5. LITHIOFOR [Suspect]
     Active Substance: LITHIUM SULFATE
     Indication: PRODUCT USED FOR UNKNOWN INDICATION
     Dosage: 330 MILLIGRAM, QD, ? 19H, 6 MMOL X1/DAY
  6. CEFUROXIME SODIUM. [Concomitant]
     Active Substance: CEFUROXIME SODIUM
     Indication: BRONCHITIS
     Dosage: UNK
     Dates: end: 20191212
  7. DALMADORM [Suspect]
     Active Substance: FLURAZEPAM HYDROCHLORIDE
     Indication: PRODUCT USED FOR UNKNOWN INDICATION
     Dosage: 15 MILLIGRAM, QD, 15 MG X1/DAY
     Route: 048

REACTIONS (7)
  - Hypercalcaemia [Recovered/Resolved]
  - Condition aggravated [Recovering/Resolving]
  - Dysarthria [Recovering/Resolving]
  - Gait disturbance [Recovering/Resolving]
  - Antipsychotic drug level above therapeutic [Not Recovered/Not Resolved]
  - Chronic kidney disease [Recovering/Resolving]
  - Balance disorder [Recovering/Resolving]

NARRATIVE: CASE EVENT DATE: 201812
